FAERS Safety Report 24136941 (Version 3)
Quarter: 2024Q3

REPORT INFORMATION
  Report Type: Report from Study
  Country: US (occurrence: US)
  Receive Date: 20240725
  Receipt Date: 20240802
  Transmission Date: 20241016
  Serious: Yes (Hospitalization, Other)
  Sender: DR REDDYS
  Company Number: US-drreddys-SPO/USA/23/0160118

PATIENT
  Age: 73 Year
  Sex: Female
  Weight: 74.7 kg

DRUGS (25)
  1. SAPROPTERIN DIHYDROCHLORIDE [Suspect]
     Active Substance: SAPROPTERIN DIHYDROCHLORIDE
     Indication: Phenylketonuria
     Route: 048
     Dates: start: 20221014
  2. SAPROPTERIN DIHYDROCHLORIDE [Suspect]
     Active Substance: SAPROPTERIN DIHYDROCHLORIDE
     Indication: Amino acid level increased
  3. SAPROPTERIN DIHYDROCHLORIDE [Suspect]
     Active Substance: SAPROPTERIN DIHYDROCHLORIDE
     Indication: Amino acid level increased
     Route: 048
     Dates: start: 20221014
  4. SAPROPTERIN DIHYDROCHLORIDE [Suspect]
     Active Substance: SAPROPTERIN DIHYDROCHLORIDE
     Indication: Phenylketonuria
  5. SAPROPTERIN DIHYDROCHLORIDE [Suspect]
     Active Substance: SAPROPTERIN DIHYDROCHLORIDE
     Indication: Phenylketonuria
     Dosage: CRUSH THREE 100MG TABLETS (300MG) AND DISSOLVE IN 4 TO 8 OUNCES OF WATER OR APPLE JUICE AND TAKE ONC
     Route: 048
  6. HYDRALAZINE [Interacting]
     Active Substance: HYDRALAZINE HYDROCHLORIDE
     Indication: Hypertension
  7. CARVEDILOL [Concomitant]
     Active Substance: CARVEDILOL
     Indication: Product used for unknown indication
  8. TYLENOL [Concomitant]
     Active Substance: ACETAMINOPHEN
     Indication: Product used for unknown indication
  9. LISINOPRIL [Concomitant]
     Active Substance: LISINOPRIL
     Indication: Product used for unknown indication
  10. ALBUTEROL SULFATE [Concomitant]
     Active Substance: ALBUTEROL SULFATE
     Indication: Product used for unknown indication
  11. FOSAMAX [Concomitant]
     Active Substance: ALENDRONATE SODIUM
     Indication: Product used for unknown indication
  12. EFFEXOR XR [Concomitant]
     Active Substance: VENLAFAXINE HYDROCHLORIDE
     Indication: Product used for unknown indication
     Dosage: 24 HR
  13. PRAVASTATIN SODIUM 40MG TABLET [Concomitant]
     Indication: Product used for unknown indication
  14. PRIMIDONE 125MG TABLET [Concomitant]
     Indication: Product used for unknown indication
  15. TRAZODONE HCL 100MG TABLET [Concomitant]
     Indication: Product used for unknown indication
  16. NIFEDIPINE 10MG CAPSULE [Concomitant]
     Indication: Product used for unknown indication
  17. CLONIDINE HCL 0.1MG TABLET [Concomitant]
     Indication: Product used for unknown indication
  18. BREZTRI [Concomitant]
     Active Substance: BUDESONIDE\FORMOTEROL\GLYCOPYRROLATE
     Indication: Product used for unknown indication
  19. COREG 25MG TABLET [Concomitant]
     Indication: Product used for unknown indication
  20. KEPPRA 500MG TABLET [Concomitant]
     Indication: Product used for unknown indication
  21. LOSARTAN POTASSIUM 100MG TABLET [Concomitant]
     Indication: Product used for unknown indication
  22. FLONASE ALLERGY RELIEF [Concomitant]
     Active Substance: FLUTICASONE PROPIONATE
     Indication: Product used for unknown indication
  23. PRILOSEC OTC 20MG TABLET DR [Concomitant]
     Indication: Product used for unknown indication
  24. LYRICA 25MG CAPSULE [Concomitant]
     Indication: Product used for unknown indication
  25. SAPROPTERIN DIHYDROCHLORIDE [Concomitant]
     Active Substance: SAPROPTERIN DIHYDROCHLORIDE
     Indication: Product used for unknown indication

REACTIONS (6)
  - Surgery [Recovered/Resolved]
  - Hospitalisation [Unknown]
  - Anxiety [Unknown]
  - Decreased appetite [Unknown]
  - Blood pressure abnormal [Unknown]
  - Potentiating drug interaction [Unknown]
